FAERS Safety Report 18586893 (Version 2)
Quarter: 2021Q1

REPORT INFORMATION
  Report Type: Report from Study
  Country: IT (occurrence: IT)
  Receive Date: 20201207
  Receipt Date: 20210104
  Transmission Date: 20210419
  Serious: Yes (Hospitalization)
  Sender: FDA-Public Use
  Company Number: IT-PFIZER INC-2020478363

PATIENT
  Age: 41 Year
  Sex: Male

DRUGS (4)
  1. VATRAN [Suspect]
     Active Substance: DIAZEPAM
     Dosage: 120 MG, TOTAL
     Route: 048
     Dates: start: 20201029, end: 20201029
  2. ALCOVER [Suspect]
     Active Substance: SODIUM OXYBATE
     Dosage: 9 MG, TOTAL
     Route: 048
     Dates: start: 20201029, end: 20201029
  3. SERTRALINE HCL [Suspect]
     Active Substance: SERTRALINE HYDROCHLORIDE
     Dosage: 1.4 G, TOTAL
     Route: 048
     Dates: start: 20201029, end: 20201029
  4. LEXOTAN [Suspect]
     Active Substance: BROMAZEPAM
     Dosage: 40 ML, TOTAL
     Route: 048
     Dates: start: 20201029, end: 20201029

REACTIONS (3)
  - Abdominal pain upper [Recovered/Resolved]
  - Intentional overdose [Recovered/Resolved]
  - Drug abuse [Recovered/Resolved]

NARRATIVE: CASE EVENT DATE: 20201029
